FAERS Safety Report 6828172-X (Version None)
Quarter: 2010Q3

REPORT INFORMATION
  Report Type: 
  Country: None (occurrence: None)
  Receive Date: 20100709
  Receipt Date: 20100708
  Transmission Date: 20110219
  Serious: Yes (Death, Hospitalization)
  Sender: FDA-Public Use
  Company Number: DE-ROCHE-557214

PATIENT
  Sex: Male
  Weight: 64 kg

DRUGS (8)
  1. BEVACIZUMAB [Suspect]
     Dosage: FREQUECY:15/29. DOSAGE FORM: INFUSION; PERMANENTLY DISCONTINUED; LAST DOSE PRIOR TO SAE: 26 MAR 08
     Route: 042
     Dates: start: 20070725, end: 20080407
  2. IRINOTECAN HCL [Suspect]
     Dosage: FREQUENCY:1/8/15/22/29/36; PERMANENTLY DISCONTINUED; LAST DOSE PRIOR TO SAE: 2 APR 08
     Route: 042
     Dates: start: 20070717, end: 20080407
  3. FLUOROURACIL [Suspect]
     Dosage: FREQUENCY: 1/8/15/22/29/36; PERMANENTLY DISCONTINUED; LAST DOSE PRIOR TO SAE: 2 APR 08
     Route: 042
     Dates: start: 20070717, end: 20080407
  4. FOLINSYRE [Suspect]
     Dosage: DRUG: FOLIMSAYRE;FREQUENCY REPORTED AS 1/8/15/22/29/36. PERMANENTLY DISCONTINUED ON 07 APRIL 2008.
     Route: 042
     Dates: start: 20070717, end: 20080407
  5. FOLINIC ACID [Suspect]
     Dosage: FREQUENCY: 1/8/15/22/29/36; DATE OF LAST DOSE PRIOR TO SAE: 2 APR 08
     Route: 042
     Dates: start: 20070717, end: 20080407
  6. DEXAMETHASONE TAB [Concomitant]
     Dates: start: 20080402, end: 20080402
  7. 5-HT3 ANTAGONISTS [Concomitant]
     Dosage: DRUG REPORTED AS 5-HT3
     Dates: start: 20080402, end: 20080402
  8. ENALAPRIL MALEATE [Concomitant]
     Dosage: REPROTED AS ^EUAPRIE^
     Dates: start: 20061031

REACTIONS (13)
  - ABDOMINAL PAIN LOWER [None]
  - CEREBROVASCULAR ACCIDENT [None]
  - DEHYDRATION [None]
  - GENERAL PHYSICAL HEALTH DETERIORATION [None]
  - HEPATIC NECROSIS [None]
  - HEPATOMEGALY [None]
  - INFREQUENT BOWEL MOVEMENTS [None]
  - METASTASES TO LIVER [None]
  - NAUSEA [None]
  - OEDEMA PERIPHERAL [None]
  - PERITONITIS [None]
  - SUPERINFECTION [None]
  - VOMITING [None]
